FAERS Safety Report 7033893-2 (Version None)
Quarter: 2010Q4

REPORT INFORMATION
  Report Type: 
  Country: None (occurrence: None)
  Receive Date: 20101007
  Receipt Date: 20100929
  Transmission Date: 20110411
  Serious: Yes (Other)
  Sender: FDA-Public Use
  Company Number: US-AMGEN-QUU442127

PATIENT
  Sex: Female

DRUGS (2)
  1. NPLATE [Suspect]
     Indication: IDIOPATHIC THROMBOCYTOPENIC PURPURA
     Dates: start: 20090424, end: 20090508
  2. CORTICOSTEROIDS [Concomitant]

REACTIONS (2)
  - CARDIAC OPERATION [None]
  - CEREBROVASCULAR ACCIDENT [None]
